FAERS Safety Report 14219081 (Version 3)
Quarter: 2018Q3

REPORT INFORMATION
  Report Type: Spontaneous
  Country: US (occurrence: US)
  Receive Date: 20171123
  Receipt Date: 20180820
  Transmission Date: 20181010
  Serious: Yes (Hospitalization, Other)
  Sender: FDA-Public Use
  Company Number: US-JNJFOC-20170915356

PATIENT
  Age: 47 Year
  Sex: Male

DRUGS (2)
  1. INVOKANA [Suspect]
     Active Substance: CANAGLIFLOZIN
     Indication: DIABETES MELLITUS
     Route: 048
     Dates: start: 20141216
  2. INVOKANA [Suspect]
     Active Substance: CANAGLIFLOZIN
     Indication: DIABETES MELLITUS
     Route: 048
     Dates: start: 20150113, end: 20150811

REACTIONS (5)
  - Diabetic ketoacidosis [Unknown]
  - Acute kidney injury [Recovering/Resolving]
  - Rhabdomyolysis [Recovering/Resolving]
  - Renal tubular necrosis [Recovering/Resolving]
  - Syncope [Recovering/Resolving]

NARRATIVE: CASE EVENT DATE: 201508
